FAERS Safety Report 13805254 (Version 1)
Quarter: 2017Q3

REPORT INFORMATION
  Report Type: Spontaneous
  Country: IT (occurrence: IT)
  Receive Date: 20170728
  Receipt Date: 20170728
  Transmission Date: 20171127
  Serious: Yes (Other)
  Sender: FDA-Public Use
  Company Number: IT-BAYER-2017-141244

PATIENT
  Age: 36 Year
  Sex: Female

DRUGS (2)
  1. DASATINIB [Concomitant]
     Active Substance: DASATINIB
     Dosage: 100 MG, QD
  2. ACETYLSALICYLIC ACID({=100 MG) [Suspect]
     Active Substance: ASPIRIN
     Dosage: UNK

REACTIONS (2)
  - Maternal exposure during pregnancy [None]
  - Premature delivery [None]
